FAERS Safety Report 25490060 (Version 4)
Quarter: 2025Q3

REPORT INFORMATION
  Report Type: Spontaneous
  Country: US (occurrence: US)
  Receive Date: 20250628
  Receipt Date: 20250814
  Transmission Date: 20251021
  Serious: Yes (Hospitalization)
  Sender: UNITED THERAPEUTICS
  Company Number: US-UNITED THERAPEUTICS-UNT-2025-021355

PATIENT
  Age: 65 Year
  Sex: Female
  Weight: 58.05 kg

DRUGS (12)
  1. TYVASO DPI [Suspect]
     Active Substance: TREPROSTINIL
     Indication: Pulmonary arterial hypertension
     Dosage: 16 ?G, QID
     Dates: start: 20250616, end: 20250618
  2. TYVASO DPI [Suspect]
     Active Substance: TREPROSTINIL
     Dosage: 16 ?G, QID (RESTARTED)
     Dates: start: 20250619, end: 20250620
  3. TYVASO DPI [Suspect]
     Active Substance: TREPROSTINIL
     Indication: Pulmonary arterial hypertension
  4. ESTROGEL [Concomitant]
     Active Substance: ESTRADIOL
     Indication: Product used for unknown indication
  5. AMLODIPINE BESYLATE [Concomitant]
     Active Substance: AMLODIPINE BESYLATE
     Indication: Product used for unknown indication
  6. OLMESARTAN MEDOXOMIL [Concomitant]
     Active Substance: OLMESARTAN MEDOXOMIL
     Indication: Product used for unknown indication
  7. PROBIOTICS NOS [Concomitant]
     Active Substance: PROBIOTICS NOS
     Indication: Product used for unknown indication
  8. BENZONATATE [Concomitant]
     Active Substance: BENZONATATE
     Indication: Product used for unknown indication
  9. PROGESTERONE [Concomitant]
     Active Substance: PROGESTERONE
     Indication: Product used for unknown indication
  10. TORSEMIDE [Concomitant]
     Active Substance: TORSEMIDE
     Indication: Product used for unknown indication
  11. ROSUVASTATIN CALCIUM [Concomitant]
     Active Substance: ROSUVASTATIN CALCIUM
     Indication: Product used for unknown indication
  12. PRILOSEC [Concomitant]
     Active Substance: OMEPRAZOLE MAGNESIUM
     Indication: Product used for unknown indication

REACTIONS (15)
  - Blood sodium decreased [Not Recovered/Not Resolved]
  - Cough [Unknown]
  - Dizziness [Unknown]
  - Hyperhidrosis [Unknown]
  - Anxiety [Unknown]
  - Oropharyngeal pain [Unknown]
  - Pharyngeal paraesthesia [Unknown]
  - Musculoskeletal stiffness [Unknown]
  - Grip strength decreased [Unknown]
  - Blood pressure systolic increased [Unknown]
  - Feeling abnormal [Unknown]
  - Dyspnoea [Unknown]
  - Nausea [Unknown]
  - Dysphonia [Unknown]
  - Product residue present [Recovered/Resolved]

NARRATIVE: CASE EVENT DATE: 20250601
